FAERS Safety Report 25277011 (Version 1)
Quarter: 2025Q2

REPORT INFORMATION
  Report Type: Spontaneous
  Country: US (occurrence: US)
  Receive Date: 20250507
  Receipt Date: 20250507
  Transmission Date: 20250717
  Serious: No
  Sender: ROCHE
  Company Number: US-ROCHE-10000273993

PATIENT
  Sex: Female

DRUGS (2)
  1. XOLAIR [Suspect]
     Active Substance: OMALIZUMAB
     Indication: Urticaria aquagenic
     Route: 058
     Dates: start: 20241008, end: 20250307
  2. XOLAIR [Suspect]
     Active Substance: OMALIZUMAB
     Dosage: TWO 150 MG INJECTION FOR 300 MG DOSE
     Route: 058
     Dates: start: 20250307

REACTIONS (3)
  - Product storage error [Unknown]
  - Off label use [Unknown]
  - No adverse event [Unknown]
